FAERS Safety Report 19687285 (Version 5)
Quarter: 2021Q4

REPORT INFORMATION
  Report Type: Report from Study
  Country: CA (occurrence: CA)
  Receive Date: 20210811
  Receipt Date: 20211028
  Transmission Date: 20220303
  Serious: Yes (Hospitalization, Other)
  Sender: FDA-Public Use
  Company Number: CA-TAKEDA-2021TUS049991

PATIENT
  Age: 53 Year
  Sex: Female

DRUGS (3)
  1. VEDOLIZUMAB [Suspect]
     Active Substance: VEDOLIZUMAB
     Indication: Colitis ulcerative
     Dosage: 300 MILLIGRAM
     Route: 042
     Dates: start: 20210311
  2. VEDOLIZUMAB [Suspect]
     Active Substance: VEDOLIZUMAB
     Dosage: 300 MILLIGRAM
     Route: 042
  3. PREDNISONE [Concomitant]
     Active Substance: PREDNISONE
     Dosage: UNK
     Dates: start: 20210204

REACTIONS (9)
  - Generalised tonic-clonic seizure [Unknown]
  - Amnesia [Unknown]
  - Spinal fracture [Unknown]
  - Demyelination [Unknown]
  - Optic neuropathy [Unknown]
  - Colitis ulcerative [Unknown]
  - Nerve injury [Unknown]
  - Pharyngeal ulceration [Unknown]
  - Rash [Unknown]
